FAERS Safety Report 6634340-2 (Version None)
Quarter: 2010Q1

REPORT INFORMATION
  Report Type: 
  Country: None (occurrence: None)
  Receive Date: 20100315
  Receipt Date: 20100212
  Transmission Date: 20100710
  Serious: No
  Sender: FDA-Public Use
  Company Number: US-BAYER-201012008BCC

PATIENT
  Age: 80 Year
  Sex: Male
  Weight: 81 kg

DRUGS (7)
  1. ALEVE (CAPLET) [Suspect]
     Indication: PAIN
     Dosage: TOOK 1 TO 2 CAPLETS
     Route: 048
     Dates: start: 20100121
  2. VICODIN [Concomitant]
     Route: 065
  3. PACERONE [Concomitant]
     Route: 065
  4. WARFARIN SODIUM [Concomitant]
     Route: 065
  5. LISINOPRIL [Concomitant]
     Route: 065
  6. ASPIRIN [Concomitant]
     Route: 065
  7. ASPIRIN [Concomitant]
     Route: 048

REACTIONS (1)
  - DYSPEPSIA [None]
